FAERS Safety Report 7173869-8 (Version None)
Quarter: 2010Q4

REPORT INFORMATION
  Report Type: 
  Country: None (occurrence: None)
  Receive Date: 20101215
  Receipt Date: 20101215
  Transmission Date: 20110411
  Serious: Yes (Disabling)
  Sender: FDA-Public Use
  Company Number: None

PATIENT
  Sex: Female
  Weight: 58.9676 kg

DRUGS (1)
  1. BONIVA [Suspect]
     Indication: OSTEOPOROSIS
     Dosage: REG MONTHLY ORAL
     Route: 048
     Dates: start: 19990101, end: 20090101

REACTIONS (2)
  - JAW FRACTURE [None]
  - TOOTH ABSCESS [None]
